FAERS Safety Report 23220938 (Version 3)
Quarter: 2023Q4

REPORT INFORMATION
  Report Type: Spontaneous
  Country: KZ (occurrence: KZ)
  Receive Date: 20231123
  Receipt Date: 20231218
  Transmission Date: 20240110
  Serious: Yes (Other)
  Sender: FDA-Public Use
  Company Number: KZ-HETERO-HET2023KZ03291

PATIENT
  Age: 35 Year
  Sex: Female
  Weight: 54 kg

DRUGS (1)
  1. EMTRICITABINE\TENOFOVIR DISOPROXIL FUMARATE [Suspect]
     Active Substance: EMTRICITABINE\TENOFOVIR DISOPROXIL FUMARATE
     Indication: Asymptomatic HIV infection
     Dosage: 1 TABLET PER DAY
     Route: 065
     Dates: start: 20171130, end: 20230912

REACTIONS (1)
  - Nephropathy toxic [Recovering/Resolving]
